FAERS Safety Report 20922289 (Version 1)
Quarter: 2022Q2

REPORT INFORMATION
  Report Type: Spontaneous
  Country: US (occurrence: US)
  Receive Date: 20220607
  Receipt Date: 20220607
  Transmission Date: 20220721
  Serious: Yes (Other)
  Sender: FDA-Public Use
  Company Number: US-STRIDES ARCOLAB LIMITED-2022SP004473

PATIENT
  Age: 13 Year

DRUGS (13)
  1. CYCLOSPORINE [Suspect]
     Active Substance: CYCLOSPORINE
     Indication: Allogenic stem cell transplantation
     Dosage: UNK
     Route: 065
  2. PREDNISOLONE [Suspect]
     Active Substance: PREDNISOLONE
     Indication: Allogenic stem cell transplantation
     Dosage: UNK (INITIAL DOSE NOT STATED)
     Route: 065
  3. PREDNISOLONE [Suspect]
     Active Substance: PREDNISOLONE
     Indication: Chronic graft versus host disease in skin
     Dosage: 0.23 MILLIGRAM/KILOGRAM
     Route: 065
  4. PREDNISOLONE [Suspect]
     Active Substance: PREDNISOLONE
     Indication: Chronic graft versus host disease in lung
  5. TACROLIMUS [Suspect]
     Active Substance: TACROLIMUS
     Indication: Chronic graft versus host disease in skin
     Dosage: UNK
     Route: 065
  6. TACROLIMUS [Suspect]
     Active Substance: TACROLIMUS
     Indication: Chronic graft versus host disease in lung
  7. RUXOLITINIB [Suspect]
     Active Substance: RUXOLITINIB
     Indication: Chronic graft versus host disease in skin
     Dosage: 5 MILLIGRAM (TWICE A DAY)
     Route: 048
  8. RUXOLITINIB [Suspect]
     Active Substance: RUXOLITINIB
     Indication: Chronic graft versus host disease in lung
  9. ABATACEPT [Suspect]
     Active Substance: ABATACEPT
     Indication: Allogenic stem cell transplantation
     Dosage: UNK
     Route: 065
  10. INFLIXIMAB [Suspect]
     Active Substance: INFLIXIMAB
     Indication: Chronic graft versus host disease in skin
     Dosage: UNK
     Route: 065
  11. INFLIXIMAB [Suspect]
     Active Substance: INFLIXIMAB
     Indication: Chronic graft versus host disease in lung
  12. IMATINIB [Suspect]
     Active Substance: IMATINIB
     Indication: Chronic graft versus host disease in skin
     Dosage: UNK
     Route: 065
  13. IMATINIB [Suspect]
     Active Substance: IMATINIB
     Indication: Chronic graft versus host disease in lung

REACTIONS (8)
  - Gastroenteritis adenovirus [Recovered/Resolved]
  - Pneumonia cytomegaloviral [Recovered/Resolved]
  - Alpha haemolytic streptococcal infection [Recovered/Resolved]
  - Pneumonia bacterial [Recovered/Resolved]
  - Septic shock [Recovered/Resolved]
  - Graft versus host disease [Unknown]
  - Coronavirus infection [Recovered/Resolved]
  - Off label use [Unknown]
